FAERS Safety Report 20329659 (Version 1)
Quarter: 2022Q1

REPORT INFORMATION
  Report Type: Spontaneous
  Country: US (occurrence: US)
  Receive Date: 20220112
  Receipt Date: 20220112
  Transmission Date: 20220423
  Serious: Yes (Hospitalization)
  Sender: FDA-Public Use
  Company Number: US-BIOGEN-2022BI01084570

PATIENT
  Age: 17 Year

DRUGS (1)
  1. SPINRAZA [Suspect]
     Active Substance: NUSINERSEN
     Indication: Spinal muscular atrophy
     Route: 065
     Dates: start: 20170719

REACTIONS (4)
  - Road traffic accident [Recovered/Resolved]
  - Pelvic fracture [Not Recovered/Not Resolved]
  - Internal haemorrhage [Not Recovered/Not Resolved]
  - Pulmonary contusion [Not Recovered/Not Resolved]

NARRATIVE: CASE EVENT DATE: 20220103
